FAERS Safety Report 14111547 (Version 2)
Quarter: 2017Q4

REPORT INFORMATION
  Report Type: Report from Study
  Country: BE (occurrence: BE)
  Receive Date: 20171020
  Receipt Date: 20171214
  Transmission Date: 20180321
  Serious: Yes (Hospitalization, Other)
  Sender: FDA-Public Use
  Company Number: BE-TEVA-704187ROM

PATIENT
  Age: 77 Year
  Sex: Female

DRUGS (3)
  1. LONQUEX 6 MG SOLUTION FOR INJECTION [Suspect]
     Active Substance: LIPEGFILGRASTIM
     Indication: PROPHYLAXIS
     Dosage: LAST ADMIN BEFORE AE: 06-OCT-2016
     Route: 058
     Dates: start: 20161006, end: 20161006
  2. CYCLOPHOSPHAMID [Suspect]
     Active Substance: CYCLOPHOSPHAMIDE
     Indication: NEOPLASM MALIGNANT
     Dosage: LAST ADMIN DATE BEFORE AE: 05-OCT-2016
     Route: 042
     Dates: start: 20161005, end: 20161005
  3. EPIRUBICIN [Suspect]
     Active Substance: EPIRUBICIN
     Indication: NEOPLASM MALIGNANT
     Dosage: LAST ADMIN DATE BEFORE AE: 05-OCT-2016
     Route: 042
     Dates: start: 20161005, end: 20161005

REACTIONS (5)
  - Embolism [Recovered/Resolved with Sequelae]
  - Thrombocytopenia [Recovered/Resolved]
  - Anaemia [Recovered/Resolved with Sequelae]
  - Febrile neutropenia [Recovered/Resolved]
  - Chest pain [Recovered/Resolved]

NARRATIVE: CASE EVENT DATE: 20161012
